FAERS Safety Report 15595386 (Version 1)
Quarter: 2018Q4

REPORT INFORMATION
  Report Type: Spontaneous
  Country: US (occurrence: US)
  Receive Date: 20181107
  Receipt Date: 20181107
  Transmission Date: 20190205
  Serious: Yes (Other)
  Sender: FDA-Public Use
  Company Number: US-AMGEN-USASP2018155525

PATIENT
  Age: 81 Year
  Sex: Female

DRUGS (3)
  1. MTX [Suspect]
     Active Substance: METHOTREXATE SODIUM
     Indication: PRODUCT USED FOR UNKNOWN INDICATION
     Dosage: 0.8 MG, QWK
     Route: 065
     Dates: start: 201709
  2. MTX [Suspect]
     Active Substance: METHOTREXATE SODIUM
     Dosage: 0.8 MG, QWK
     Route: 065
     Dates: start: 201804
  3. ENBREL [Suspect]
     Active Substance: ETANERCEPT
     Indication: PRODUCT USED FOR UNKNOWN INDICATION
     Dosage: UNK
     Route: 065

REACTIONS (4)
  - Rheumatoid arthritis [Unknown]
  - Diverticulitis [Unknown]
  - Drug ineffective [Unknown]
  - Urosepsis [Unknown]

NARRATIVE: CASE EVENT DATE: 201712
